FAERS Safety Report 5599829-6 (Version None)
Quarter: 2008Q1

REPORT INFORMATION
  Report Type: 
  Country: None (occurrence: None)
  Receive Date: 20080118
  Receipt Date: 20080118
  Transmission Date: 20080703
  Serious: Yes (Death)
  Sender: FDA-Public Use
  Company Number: None

PATIENT
  Age: 63 Year
  Sex: Female
  Weight: 54.4316 kg

DRUGS (1)
  1. LIPITOR [Suspect]
     Indication: BLOOD CHOLESTEROL INCREASED
     Dosage: 10MG DAILY PO
     Route: 048
     Dates: start: 20010125, end: 20020417

REACTIONS (3)
  - AMYOTROPHIC LATERAL SCLEROSIS [None]
  - BULBAR PALSY [None]
  - GENERAL PHYSICAL HEALTH DETERIORATION [None]
